FAERS Safety Report 9436653 (Version 1)
Quarter: 2013Q3

REPORT INFORMATION
  Report Type: Spontaneous
  Country: US (occurrence: US)
  Receive Date: 20130802
  Receipt Date: 20130802
  Transmission Date: 20140515
  Serious: Yes (Hospitalization, Other)
  Sender: FDA-Public Use
  Company Number: US-ROCHE-1253360

PATIENT
  Age: 60 Year
  Sex: Male

DRUGS (4)
  1. PEGASYS [Suspect]
     Indication: CHRONIC HEPATITIS C
     Route: 058
     Dates: start: 20130701, end: 20130718
  2. COPEGUS [Suspect]
     Indication: CHRONIC HEPATITIS C
     Dosage: 1200MG DAILY DIVIDED DOSES
     Route: 048
     Dates: start: 20130701, end: 20130718
  3. TELAPREVIR [Suspect]
     Indication: CHRONIC HEPATITIS C
     Route: 065
     Dates: start: 20130701, end: 20130718
  4. LACTULOSE [Concomitant]

REACTIONS (2)
  - Ammonia increased [Not Recovered/Not Resolved]
  - Diarrhoea [Unknown]
